FAERS Safety Report 8273564-8 (Version None)
Quarter: 2012Q2

REPORT INFORMATION
  Report Type: 
  Country: None (occurrence: None)
  Receive Date: 20120411
  Receipt Date: 20120402
  Transmission Date: 20120825
  Serious: Yes (Other)
  Sender: FDA-Public Use
  Company Number: GB-VERTEX PHARMACEUTICALS INC.-000000000000000401

PATIENT
  Age: 57 Year
  Sex: Male
  Weight: 110 kg

DRUGS (1)
  1. TELAPREVIR [Suspect]
     Indication: HEPATITIS C
     Dosage: DOSAGE FORM: TABLET
     Route: 048

REACTIONS (6)
  - PLATELET COUNT DECREASED [None]
  - COUGH [None]
  - DRY SKIN [None]
  - LOWER RESPIRATORY TRACT INFECTION [None]
  - LETHARGY [None]
  - HAEMOGLOBIN DECREASED [None]
